FAERS Safety Report 23107191 (Version 9)
Quarter: 2024Q3

REPORT INFORMATION
  Report Type: Report from Study
  Country: DE (occurrence: DE)
  Receive Date: 20231026
  Receipt Date: 20240919
  Transmission Date: 20241017
  Serious: Yes (Other)
  Sender: ROCHE
  Company Number: DE-ROCHE-3445332

PATIENT
  Age: 49 Year
  Sex: Female
  Weight: 107 kg

DRUGS (16)
  1. OCREVUS [Suspect]
     Active Substance: OCRELIZUMAB
     Indication: Relapsing multiple sclerosis
     Dosage: MOST RECENT DOSE PRIOR TO AE 06/MAR/2023
     Route: 042
     Dates: start: 20220324, end: 20220407
  2. OCREVUS [Suspect]
     Active Substance: OCRELIZUMAB
     Route: 042
     Dates: start: 20221006
  3. OCREVUS [Suspect]
     Active Substance: OCRELIZUMAB
     Dosage: MOST RECENT DOSE RECEIVED ON 18/OCT/2023
     Route: 042
     Dates: start: 20231018
  4. OCREVUS [Suspect]
     Active Substance: OCRELIZUMAB
     Route: 042
     Dates: start: 20230324
  5. NABIXIMOLS [Concomitant]
     Active Substance: NABIXIMOLS
     Indication: Muscle spasticity
     Route: 002
     Dates: start: 202304
  6. DIMETHINDENE [Concomitant]
     Active Substance: DIMETHINDENE
     Indication: Premedication
     Dosage: DEFINITION OF THE INTERVAL: AS REQUIRED
     Route: 042
     Dates: start: 20220324
  7. BACLOFEN [Concomitant]
     Active Substance: BACLOFEN
     Indication: Muscle spasticity
     Route: 048
  8. BACLOFEN [Concomitant]
     Active Substance: BACLOFEN
     Route: 048
  9. RAMIPRIL [Concomitant]
     Active Substance: RAMIPRIL
     Indication: Hypertension
     Route: 048
  10. NABIXIMOLS [Concomitant]
     Active Substance: NABIXIMOLS
     Indication: Musculoskeletal stiffness
     Dosage: DEFINITION OF THE INTERVAL: AS REQUIRED
     Route: 007
     Dates: start: 202310
  11. PREGABALIN [Concomitant]
     Active Substance: PREGABALIN
     Indication: Neuralgia
     Dosage: 175
     Route: 048
  12. PREGABALIN [Concomitant]
     Active Substance: PREGABALIN
     Route: 048
  13. ATORVASTATIN [Concomitant]
     Active Substance: ATORVASTATIN
     Indication: Hypercholesterolaemia
     Route: 048
  14. METHYLPREDNISOLONE [Concomitant]
     Active Substance: METHYLPREDNISOLONE
     Indication: Premedication
     Dosage: DEFINITION OF THE INTERVAL: AS REQUIRED
     Route: 042
     Dates: start: 20220324
  15. SOLIFENACIN [Concomitant]
     Active Substance: SOLIFENACIN
     Indication: Hypertonic bladder
     Route: 048
     Dates: start: 20221006
  16. ACETAMINOPHEN [Concomitant]
     Active Substance: ACETAMINOPHEN
     Indication: Premedication
     Dosage: DEFINITION OF THE INTERVAL: AS REQUIRED
     Route: 048
     Dates: start: 20220324

REACTIONS (3)
  - Herpes zoster [Recovered/Resolved]
  - COVID-19 [Recovered/Resolved]
  - Herpes zoster [Unknown]

NARRATIVE: CASE EVENT DATE: 20230301
